FAERS Safety Report 9170595 (Version 1)
Quarter: 2013Q1

REPORT INFORMATION
  Report Type: Spontaneous
  Country: US (occurrence: US)
  Receive Date: 20130319
  Receipt Date: 20130319
  Transmission Date: 20140127
  Serious: No
  Sender: FDA-Public Use
  Company Number: US-BAYER-2013-031023

PATIENT
  Sex: Male

DRUGS (3)
  1. BETASERON [Suspect]
     Dosage: 0.3 MG, UNK
     Dates: start: 2008, end: 2010
  2. TRAMADOL [Concomitant]
  3. AMLODIPINE BESYLATE W/BENAZEPRIL [Concomitant]

REACTIONS (3)
  - Drug ineffective [Unknown]
  - Injection site mass [Unknown]
  - Influenza like illness [Unknown]
